FAERS Safety Report 20643837 (Version 1)
Quarter: 2022Q1

REPORT INFORMATION
  Report Type: Spontaneous
  Country: JP (occurrence: JP)
  Receive Date: 20220328
  Receipt Date: 20220328
  Transmission Date: 20220423
  Serious: Yes (Hospitalization, Other)
  Sender: FDA-Public Use
  Company Number: JP-ABBVIE-22K-087-4330192-00

PATIENT
  Age: 21 Year
  Sex: Male

DRUGS (2)
  1. VALPROIC ACID [Suspect]
     Active Substance: VALPROIC ACID
     Indication: Epilepsy
     Route: 065
  2. LAMOTRIGINE [Concomitant]
     Active Substance: LAMOTRIGINE
     Indication: Product used for unknown indication

REACTIONS (5)
  - Inflammation [Recovering/Resolving]
  - Amylase increased [Recovering/Resolving]
  - White blood cell count increased [Recovering/Resolving]
  - C-reactive protein increased [Recovering/Resolving]
  - Pancreatitis acute [Recovering/Resolving]
